FAERS Safety Report 6186231-1 (Version None)
Quarter: 2009Q2

REPORT INFORMATION
  Report Type: 
  Country: None (occurrence: None)
  Receive Date: 20090511
  Receipt Date: 20090430
  Transmission Date: 20091009
  Serious: Yes (Other)
  Sender: FDA-Public Use
  Company Number: PHEH2006US11631

PATIENT
  Sex: Female

DRUGS (10)
  1. ZOMETA [Suspect]
  2. AREDIA [Suspect]
  3. OXYCONTIN [Concomitant]
  4. AUGMENTAN ORAL [Concomitant]
     Route: 048
  5. COUMADIN [Concomitant]
  6. HERCEPTIN [Concomitant]
  7. FLONASE [Concomitant]
  8. COMPAZINE [Concomitant]
  9. DECADRON                                /CAN/ [Concomitant]
  10. ALTACE [Concomitant]
     Dosage: 10 MG, BID

REACTIONS (14)
  - ANAEMIA [None]
  - BREAST CANCER METASTATIC [None]
  - CENTRAL VENOUS CATHETERISATION [None]
  - HYPERTENSION [None]
  - JOINT EFFUSION [None]
  - LUNG NEOPLASM [None]
  - METASTASES TO CENTRAL NERVOUS SYSTEM [None]
  - METASTASES TO LIVER [None]
  - MUSCULOSKELETAL PAIN [None]
  - MYOSITIS [None]
  - OSTEONECROSIS [None]
  - PERICARDIAL EFFUSION [None]
  - PULMONARY OEDEMA [None]
  - SPINAL COMPRESSION FRACTURE [None]
